FAERS Safety Report 17487586 (Version 1)
Quarter: 2020Q1

REPORT INFORMATION
  Report Type: Spontaneous
  Country: US (occurrence: US)
  Receive Date: 20200303
  Receipt Date: 20200303
  Transmission Date: 20200409
  Serious: No
  Sender: FDA-Public Use
  Company Number: US-ALLERGAN-1931703US

PATIENT
  Age: 69 Year
  Sex: Female

DRUGS (2)
  1. SAVELLA [Suspect]
     Active Substance: MILNACIPRAN HYDROCHLORIDE
     Indication: FIBROMYALGIA
     Dosage: 50 MG, BID
     Route: 048
     Dates: start: 2016, end: 201907
  2. TYLENOL [Concomitant]
     Active Substance: ACETAMINOPHEN
     Dosage: UNK, PRN
     Route: 048

REACTIONS (5)
  - Heart rate increased [Unknown]
  - Hair texture abnormal [Unknown]
  - Alopecia [Unknown]
  - Pain of skin [Unknown]
  - Trichorrhexis [Unknown]

NARRATIVE: CASE EVENT DATE: 2019
